FAERS Safety Report 10041206 (Version 1)
Quarter: 2014Q1

REPORT INFORMATION
  Report Type: Spontaneous
  Country: AU (occurrence: None)
  Receive Date: 20140325
  Receipt Date: 20140325
  Transmission Date: 20141002
  Serious: Yes (Hospitalization, Other)
  Sender: FDA-Public Use
  Company Number: 20133559

PATIENT
  Age: 85 Year
  Sex: Male
  Weight: 61 kg

DRUGS (6)
  1. ACEON [Suspect]
     Indication: HYPERTENSION
     Route: 048
     Dates: start: 200009, end: 20001010
  2. MINAX [Suspect]
     Indication: PRODUCT USED FOR UNKNOWN INDICATION
     Route: 048
  3. UREX [Suspect]
     Indication: PRODUCT USED FOR UNKNOWN INDICATION
     Route: 048
     Dates: end: 20001010
  4. ACETYLSALICYLIC ACID (ACETYLSALICYLIC ACID) [Concomitant]
  5. OXYCODONE (OXYCODONE) [Concomitant]
  6. PARACETAMOL (PARACETAMOL) [Concomitant]

REACTIONS (8)
  - Decreased appetite [None]
  - Nausea [None]
  - Chills [None]
  - Blood creatine phosphokinase increased [None]
  - Dementia [None]
  - Confusional state [None]
  - Renal failure acute [None]
  - Pyrexia [None]
